FAERS Safety Report 11809030 (Version 2)
Quarter: 2016Q1

REPORT INFORMATION
  Report Type: Spontaneous
  Country: US (occurrence: US)
  Receive Date: 20151207
  Receipt Date: 20160211
  Transmission Date: 20160525
  Serious: Yes (Hospitalization)
  Sender: FDA-Public Use
  Company Number: US-SA-2015SA199056

PATIENT
  Age: 64 Year
  Sex: Male
  Weight: 96.2 kg

DRUGS (18)
  1. VENTOLIN [Concomitant]
     Active Substance: ALBUTEROL SULFATE
  2. IMODIUM [Concomitant]
     Active Substance: LOPERAMIDE HYDROCHLORIDE
     Route: 065
  3. IRBESARTAN. [Concomitant]
     Active Substance: IRBESARTAN
     Route: 065
  4. VIAGRA [Concomitant]
     Active Substance: SILDENAFIL CITRATE
     Route: 065
  5. METAXALONE. [Concomitant]
     Active Substance: METAXALONE
  6. NEXIUM [Concomitant]
     Active Substance: ESOMEPRAZOLE MAGNESIUM
  7. PRAVASTATIN [Concomitant]
     Active Substance: PRAVASTATIN\PRAVASTATIN SODIUM
     Route: 065
  8. AVAPRO [Suspect]
     Active Substance: IRBESARTAN
     Route: 048
     Dates: end: 2015
  9. PREDNISONE. [Concomitant]
     Active Substance: PREDNISONE
  10. LENVIMA [Suspect]
     Active Substance: LENVATINIB
     Indication: THYROID CANCER
     Route: 048
     Dates: start: 20150914, end: 20151026
  11. LENVIMA [Suspect]
     Active Substance: LENVATINIB
     Indication: THYROID CANCER
     Route: 048
     Dates: start: 2015
  12. PROMETHAZINE W/CODEINE [Concomitant]
  13. FAMOTIDINE. [Concomitant]
     Active Substance: FAMOTIDINE
  14. TAMSULOSIN [Concomitant]
     Active Substance: TAMSULOSIN
  15. SYNTHROID [Concomitant]
     Active Substance: LEVOTHYROXINE SODIUM
  16. LIDOCAINE. [Concomitant]
     Active Substance: LIDOCAINE
  17. ZOFRAN [Concomitant]
     Active Substance: ONDANSETRON HYDROCHLORIDE
     Route: 065
  18. METOPROLOL. [Concomitant]
     Active Substance: METOPROLOL

REACTIONS (12)
  - Hypoaesthesia oral [Unknown]
  - Fatigue [Unknown]
  - Dysphonia [Unknown]
  - Central nervous system lesion [Unknown]
  - Hypertension [Unknown]
  - Nausea [Unknown]
  - Lip swelling [Recovered/Resolved]
  - Tongue discolouration [Unknown]
  - Tongue blistering [Unknown]
  - Diarrhoea [Unknown]
  - Temperature intolerance [Unknown]
  - Alopecia [Unknown]

NARRATIVE: CASE EVENT DATE: 2015
